FAERS Safety Report 7065815-2 (Version None)
Quarter: 2010Q4

REPORT INFORMATION
  Report Type: 
  Country: None (occurrence: None)
  Receive Date: 20101027
  Receipt Date: 20101015
  Transmission Date: 20110411
  Serious: Yes (Other)
  Sender: FDA-Public Use
  Company Number: B0667988A

PATIENT
  Sex: Female
  Weight: 66 kg

DRUGS (3)
  1. ALLI [Suspect]
     Dosage: 1CAP PER DAY
     Route: 048
     Dates: start: 20100201, end: 20100701
  2. INSULINE [Concomitant]
     Dosage: 4INJ PER DAY
  3. CONTRACEPTIVE IMPLANT [Concomitant]

REACTIONS (5)
  - ALANINE AMINOTRANSFERASE INCREASED [None]
  - ASPARTATE AMINOTRANSFERASE INCREASED [None]
  - BLOOD ALKALINE PHOSPHATASE INCREASED [None]
  - DIARRHOEA [None]
  - GAMMA-GLUTAMYLTRANSFERASE INCREASED [None]
